APPROVED DRUG PRODUCT: SULFAIR-15
Active Ingredient: SULFACETAMIDE SODIUM
Strength: 15%
Dosage Form/Route: SOLUTION/DROPS;OPHTHALMIC
Application: A088186 | Product #001
Applicant: PHARMAFAIR INC
Approved: May 25, 1983 | RLD: No | RS: No | Type: DISCN